FAERS Safety Report 5593416-1 (Version None)
Quarter: 2008Q1

REPORT INFORMATION
  Report Type: 
  Country: None (occurrence: None)
  Receive Date: 20080114
  Receipt Date: 20080108
  Transmission Date: 20080703
  Serious: Yes (Hospitalization)
  Sender: FDA-Public Use
  Company Number: 2007SP023832

PATIENT
  Age: 16 Year
  Sex: Female
  Weight: 54 kg

DRUGS (9)
  1. CELESTAMINE TAB [Suspect]
     Indication: PRURITUS
     Dosage: 2.25 MG;TID;  2.25 MG;BID;
     Dates: start: 20071115, end: 20071116
  2. CELESTAMINE TAB [Suspect]
     Indication: PRURITUS
     Dosage: 2.25 MG;TID;  2.25 MG;BID;
     Dates: start: 20071117, end: 20071119
  3. CELESTONE [Suspect]
     Indication: HYPERSENSITIVITY
     Dosage: ;IV
     Route: 042
     Dates: start: 20071115, end: 20071115
  4. CELESTONE [Suspect]
     Dosage: ;IM
     Route: 030
     Dates: start: 20071115, end: 20071115
  5. TUSSIDANE [Concomitant]
  6. CLARAMID [Concomitant]
  7. DOLKO [Concomitant]
  8. SURGAM [Concomitant]
  9. POLARAMINE [Concomitant]

REACTIONS (13)
  - CYANOSIS [None]
  - DIZZINESS [None]
  - ERYTHEMA [None]
  - GAIT DISTURBANCE [None]
  - HEMIPARESIS [None]
  - HOT FLUSH [None]
  - HYPOGLYCAEMIA [None]
  - MALAISE [None]
  - PARAESTHESIA [None]
  - PRURITUS [None]
  - SENSATION OF FOREIGN BODY [None]
  - THIRST [None]
  - VERTIGO [None]
